FAERS Safety Report 7497325-2 (Version None)
Quarter: 2011Q2

REPORT INFORMATION
  Report Type: 
  Country: None (occurrence: None)
  Receive Date: 20110523
  Receipt Date: 20110124
  Transmission Date: 20111010
  Serious: No
  Sender: FDA-Public Use
  Company Number: US-NOVEN-11US001637

PATIENT
  Sex: Female

DRUGS (2)
  1. ANTI-ASTHMATICS [Concomitant]
     Indication: ASTHMA
     Dosage: UNK
     Route: 055
  2. DAYTRANA [Suspect]
     Indication: ATTENTION DEFICIT/HYPERACTIVITY DISORDER
     Dosage: 10 MG, UNK
     Route: 062
     Dates: start: 20110103, end: 20110118

REACTIONS (5)
  - DERMATITIS ALLERGIC [None]
  - APPLICATION SITE ERYTHEMA [None]
  - APPLICATION SITE SWELLING [None]
  - APPLICATION SITE DISCOLOURATION [None]
  - APPLICATION SITE BURN [None]
